FAERS Safety Report 9213817 (Version 1)
Quarter: 2013Q2

REPORT INFORMATION
  Report Type: Spontaneous
  Country: US (occurrence: US)
  Receive Date: 20130405
  Receipt Date: 20130405
  Transmission Date: 20140414
  Serious: Yes (Other)
  Sender: FDA-Public Use
  Company Number: US-SANOFI-AVENTIS-2013SA035126

PATIENT
  Sex: Female

DRUGS (2)
  1. LANTUS SOLOSTAR [Suspect]
     Indication: BLOOD GLUCOSE INCREASED
  2. SOLOSTAR [Suspect]
     Indication: BLOOD GLUCOSE INCREASED

REACTIONS (2)
  - Eye disorder [Unknown]
  - Visual impairment [Unknown]
